FAERS Safety Report 20054480 (Version 1)
Quarter: 2021Q4

REPORT INFORMATION
  Report Type: Spontaneous
  Country: IT (occurrence: IT)
  Receive Date: 20211110
  Receipt Date: 20211110
  Transmission Date: 20220303
  Serious: Yes (Disabling, Other)
  Sender: FDA-Public Use
  Company Number: IT-ELI_LILLY_AND_COMPANY-IT202104009658

PATIENT
  Age: 71 Year
  Sex: Female

DRUGS (8)
  1. TERIPARATIDE [Suspect]
     Active Substance: TERIPARATIDE
     Indication: Product used for unknown indication
     Dosage: UNK UNK, UNKNOWN
     Route: 065
     Dates: start: 2019
  2. TERIPARATIDE [Suspect]
     Active Substance: TERIPARATIDE
     Dosage: UNK UNK, UNKNOWN
     Route: 065
     Dates: end: 20211025
  3. CALCIUM [Suspect]
     Active Substance: CALCIUM
     Indication: Product used for unknown indication
     Dosage: UNK UNK, UNKNOWN
     Route: 065
  4. ASPIRIN [Concomitant]
     Active Substance: ASPIRIN
     Indication: Product used for unknown indication
  5. SERTRALINE [Concomitant]
     Active Substance: SERTRALINE HYDROCHLORIDE
     Indication: Product used for unknown indication
  6. FOLIC ACID [Concomitant]
     Active Substance: FOLIC ACID
     Indication: Product used for unknown indication
  7. ARMOLIPID [Concomitant]
     Indication: Product used for unknown indication
  8. CHOLECALCIFEROL [Concomitant]
     Active Substance: CHOLECALCIFEROL
     Indication: Product used for unknown indication

REACTIONS (30)
  - Atrophy [Unknown]
  - Presyncope [Unknown]
  - Hypertension [Unknown]
  - Heart rate increased [Unknown]
  - Arthralgia [Unknown]
  - Arthropathy [Unknown]
  - Fatigue [Unknown]
  - Mobility decreased [Unknown]
  - Pain in extremity [Unknown]
  - Dizziness [Unknown]
  - Headache [Unknown]
  - Gastrointestinal disorder [Unknown]
  - Blood cholesterol increased [Unknown]
  - Depression [Unknown]
  - Asthenia [Unknown]
  - Neuralgia [Unknown]
  - Blood pressure decreased [Unknown]
  - Dyspepsia [Unknown]
  - Malaise [Unknown]
  - Heart sounds abnormal [Unknown]
  - Wheezing [Unknown]
  - Pollakiuria [Unknown]
  - Weight decreased [Unknown]
  - Decreased appetite [Unknown]
  - Dyspnoea [Unknown]
  - Asphyxia [Unknown]
  - Diverticulitis [Unknown]
  - Muscle spasms [Unknown]
  - Nausea [Unknown]
  - Blood calcium increased [Unknown]

NARRATIVE: CASE EVENT DATE: 20190101
